FAERS Safety Report 7716445-8 (Version None)
Quarter: 2011Q3

REPORT INFORMATION
  Report Type: 
  Country: None (occurrence: None)
  Receive Date: 20110829
  Receipt Date: 20110819
  Transmission Date: 20111222
  Serious: Yes (Other)
  Sender: FDA-Public Use
  Company Number: JP-MERCK-1108USA03019

PATIENT
  Age: 58 Year
  Sex: Male

DRUGS (3)
  1. PEPCID [Suspect]
     Route: 051
     Dates: start: 20110818
  2. OMEPRAZOLE [Suspect]
     Route: 065
     Dates: start: 20110815, end: 20110817
  3. PEPCID [Suspect]
     Route: 051
     Dates: start: 20110814, end: 20110814

REACTIONS (2)
  - BLOOD CREATINE PHOSPHOKINASE INCREASED [None]
  - RHABDOMYOLYSIS [None]
